FAERS Safety Report 10696277 (Version 4)
Quarter: 2015Q2

REPORT INFORMATION
  Report Type: Spontaneous
  Country: US (occurrence: US)
  Receive Date: 20150107
  Receipt Date: 20150629
  Transmission Date: 20150821
  Serious: Yes (Disabling, Other)
  Sender: FDA-Public Use
  Company Number: US-009507513-1204USA04483

PATIENT
  Sex: Male
  Weight: 73.16 kg

DRUGS (1)
  1. PROPECIA [Suspect]
     Active Substance: FINASTERIDE
     Indication: ALOPECIA
     Dosage: 1 MG, QD
     Route: 048
     Dates: start: 19991213, end: 20111226

REACTIONS (36)
  - Jaw operation [Unknown]
  - Ejaculation failure [Not Recovered/Not Resolved]
  - Libido decreased [Not Recovered/Not Resolved]
  - Anaemia [Unknown]
  - Cognitive disorder [Not Recovered/Not Resolved]
  - Anxiety [Not Recovered/Not Resolved]
  - Seizure [Unknown]
  - Knee operation [Unknown]
  - Arthritis [Unknown]
  - Nephrolithiasis [Unknown]
  - Prostatitis [Unknown]
  - Nausea [Unknown]
  - Syncope [Unknown]
  - Drug dose omission [Unknown]
  - Osteoarthritis [Unknown]
  - Fatigue [Recovering/Resolving]
  - Musculoskeletal stiffness [Unknown]
  - Constipation [Unknown]
  - Renal artery stent placement [Unknown]
  - Chest pain [Unknown]
  - Hypogonadism [Unknown]
  - Oropharyngeal pain [Unknown]
  - Erectile dysfunction [Not Recovered/Not Resolved]
  - Hypertension [Recovering/Resolving]
  - Joint swelling [Unknown]
  - Arthralgia [Unknown]
  - Depression [Not Recovered/Not Resolved]
  - Ejaculation disorder [Not Recovered/Not Resolved]
  - Insomnia [Unknown]
  - Dysstasia [Unknown]
  - Drug dependence [Unknown]
  - Sexual dysfunction [Not Recovered/Not Resolved]
  - Blood testosterone decreased [Unknown]
  - Peyronie^s disease [Unknown]
  - Sleep disorder [Unknown]
  - Abdominal pain [Unknown]

NARRATIVE: CASE EVENT DATE: 20091029
